FAERS Safety Report 18097335 (Version 1)
Quarter: 2020Q3

REPORT INFORMATION
  Report Type: Spontaneous
  Country: US (occurrence: US)
  Receive Date: 20200730
  Receipt Date: 20200730
  Transmission Date: 20201103
  Serious: Yes (Death)
  Sender: FDA-Public Use
  Company Number: None

PATIENT
  Age: 73 Year
  Sex: Male

DRUGS (2)
  1. N/A [Concomitant]
     Active Substance: UNSPECIFIED INGREDIENT
  2. UDENYCA [Suspect]
     Active Substance: PEGFILGRASTIM-CBQV
     Indication: WALDENSTROM^S MACROGLOBULINAEMIA
     Dosage: ?          OTHER FREQUENCY:ONCE FOR 1 DOSE;?
     Route: 058
     Dates: start: 20200519

REACTIONS (1)
  - Death [None]
